FAERS Safety Report 5394949-3 (Version None)
Quarter: 2007Q3

REPORT INFORMATION
  Report Type: 
  Country: None (occurrence: None)
  Receive Date: 20070724
  Receipt Date: 20070717
  Transmission Date: 20080115
  Serious: Yes (Other)
  Sender: FDA-Public Use
  Company Number: PHBS2007BR12066

PATIENT
  Age: 31 Year
  Sex: Male
  Weight: 60 kg

DRUGS (2)
  1. VOLTAREN [Suspect]
     Indication: BACK PAIN
     Dosage: 50 MG, Q6H
     Route: 054
     Dates: start: 20070714
  2. VOLTAREN [Suspect]
     Dosage: 50 MG, UNK
     Route: 048
     Dates: start: 20070715, end: 20070716

REACTIONS (6)
  - DYSPNOEA [None]
  - HEAD DISCOMFORT [None]
  - MUSCULOSKELETAL STIFFNESS [None]
  - NASOPHARYNGITIS [None]
  - PYREXIA [None]
  - SECRETION DISCHARGE [None]
